FAERS Safety Report 5067254-2 (Version None)
Quarter: 2006Q3

REPORT INFORMATION
  Report Type: 
  Country: None (occurrence: None)
  Receive Date: 20060726
  Receipt Date: 20060713
  Transmission Date: 20061208
  Serious: Yes (Death, Other)
  Sender: FDA-Public Use
  Company Number: 2006079181

PATIENT
  Sex: Male

DRUGS (4)
  1. VIAGRA [Suspect]
     Indication: DRUG USE FOR UNKNOWN INDICATION
     Dosage: ORAL
     Route: 048
  2. CRATAEGUS [Concomitant]
  3. ALLOPURINOL [Concomitant]
  4. PROSTAGUTT FORTE           (SERENOA REPENS EXTRACT, URTICA EXTRACT) [Concomitant]

REACTIONS (5)
  - AORTIC ANEURYSM RUPTURE [None]
  - AORTIC DISSECTION [None]
  - BLOOD PRESSURE IMMEASURABLE [None]
  - HEPATIC HAEMORRHAGE [None]
  - INTRA-ABDOMINAL HAEMORRHAGE [None]
